FAERS Safety Report 20758830 (Version 1)
Quarter: 2022Q2

REPORT INFORMATION
  Report Type: Spontaneous
  Country: US (occurrence: US)
  Receive Date: 20220427
  Receipt Date: 20220427
  Transmission Date: 20220721
  Serious: No
  Sender: FDA-Public Use
  Company Number: US-PFIZER INC-202101325487

PATIENT
  Age: 47 Year
  Sex: Female
  Weight: 81.65 kg

DRUGS (3)
  1. GABAPENTIN [Suspect]
     Active Substance: GABAPENTIN
     Dosage: 300 MG, 3X/DAY
  2. GABAPENTIN [Suspect]
     Active Substance: GABAPENTIN
     Dosage: 300 MG (ABOUT EVERY 3 HOURS)
  3. JUNEL FE 1/20 [Concomitant]
     Active Substance: ETHINYL ESTRADIOL\NORETHINDRONE ACETATE
     Dosage: UNK

REACTIONS (4)
  - Drug ineffective [Unknown]
  - Somnolence [Unknown]
  - Therapeutic response unexpected [Unknown]
  - Quality of life decreased [Unknown]
